FAERS Safety Report 10756710 (Version 1)
Quarter: 2015Q1

REPORT INFORMATION
  Report Type: Report from Study
  Country: MX (occurrence: MX)
  Receive Date: 20150202
  Receipt Date: 20150202
  Transmission Date: 20150721
  Serious: Yes (Death)
  Sender: FDA-Public Use
  Company Number: PHHY2015MX012019

PATIENT
  Age: 24 Year
  Sex: Male

DRUGS (1)
  1. EXJADE [Suspect]
     Active Substance: DEFERASIROX
     Indication: IRON OVERLOAD
     Dosage: 2000 MG, EVERY 24 HOURS
     Route: 065
     Dates: start: 20141111

REACTIONS (1)
  - Death [Fatal]

NARRATIVE: CASE EVENT DATE: 20150118
